FAERS Safety Report 18598348 (Version 2)
Quarter: 2020Q4

REPORT INFORMATION
  Report Type: Spontaneous
  Country: IT (occurrence: IT)
  Receive Date: 20201209
  Receipt Date: 20201222
  Transmission Date: 20210114
  Serious: Yes (Life-Threatening, Hospitalization, Other)
  Sender: FDA-Public Use
  Company Number: IT-JNJFOC-20201203961

PATIENT
  Age: 44 Year
  Sex: Female

DRUGS (17)
  1. SERENASE [HALOPERIDOL] [Suspect]
     Active Substance: HALOPERIDOL
     Indication: PSYCHOTIC DISORDER
     Dosage: ; IN TOTAL
     Route: 030
     Dates: start: 201809, end: 201809
  2. LEPONEX [Suspect]
     Active Substance: CLOZAPINE
     Indication: BIPOLAR DISORDER
  3. CHLORPROMAZINE. [Suspect]
     Active Substance: CHLORPROMAZINE
     Indication: BIPOLAR DISORDER
     Route: 048
     Dates: start: 2018
  4. CLOZAPINE. [Suspect]
     Active Substance: CLOZAPINE
     Indication: BIPOLAR DISORDER
     Dosage: STOPPED AT DAY 20
     Route: 065
     Dates: start: 2018, end: 2018
  5. VALPROIC ACID. [Concomitant]
     Active Substance: VALPROIC ACID
     Indication: BIPOLAR DISORDER
     Route: 042
     Dates: start: 2018
  6. SERENASE [HALOPERIDOL] [Suspect]
     Active Substance: HALOPERIDOL
     Indication: BIPOLAR DISORDER
  7. CLOZAPINE. [Suspect]
     Active Substance: CLOZAPINE
     Route: 065
     Dates: start: 201712, end: 2018
  8. LORAZEPAM. [Concomitant]
     Active Substance: LORAZEPAM
     Indication: PSYCHOTIC DISORDER
     Route: 030
     Dates: start: 2018
  9. ARIPIPRAZOLE. [Suspect]
     Active Substance: ARIPIPRAZOLE
     Indication: PSYCHOTIC DISORDER
     Route: 030
     Dates: start: 201809, end: 2018
  10. VALPROIC ACID. [Concomitant]
     Active Substance: VALPROIC ACID
     Indication: PSYCHOTIC DISORDER
  11. PROMAZINE [Suspect]
     Active Substance: PROMAZINE
     Indication: PSYCHOTIC DISORDER
     Dosage: ; IN TOTAL
     Route: 030
     Dates: start: 201809, end: 201809
  12. ARIPIPRAZOLE. [Suspect]
     Active Substance: ARIPIPRAZOLE
     Indication: BIPOLAR DISORDER
     Route: 048
     Dates: start: 2018, end: 2018
  13. CLOZAPINE. [Suspect]
     Active Substance: CLOZAPINE
     Indication: PSYCHOTIC DISORDER
     Dosage: REDUCED
     Route: 065
     Dates: start: 2018, end: 2018
  14. LORAZEPAM. [Concomitant]
     Active Substance: LORAZEPAM
     Indication: BIPOLAR DISORDER
  15. PROMAZINE [Suspect]
     Active Substance: PROMAZINE
     Indication: BIPOLAR DISORDER
     Dosage: ; IN TOTAL
     Route: 030
     Dates: start: 201809, end: 201809
  16. CHLORPROMAZINE. [Suspect]
     Active Substance: CHLORPROMAZINE
     Indication: PSYCHOTIC DISORDER
     Dosage: ON DAY 3; IN TOTAL
     Route: 048
     Dates: start: 2018, end: 2018
  17. LEPONEX [Suspect]
     Active Substance: CLOZAPINE
     Indication: PSYCHOTIC DISORDER
     Route: 065
     Dates: start: 2005, end: 201712

REACTIONS (9)
  - Pseudomonas infection [Recovered/Resolved]
  - Klebsiella infection [Recovered/Resolved]
  - Hypomagnesaemia [Unknown]
  - Neuroleptic malignant syndrome [Recovered/Resolved]
  - Candida infection [Recovered/Resolved]
  - Systemic infection [Recovered/Resolved]
  - Staphylococcal infection [Recovered/Resolved]
  - Delirium [Recovered/Resolved]
  - Hypokalaemia [Unknown]

NARRATIVE: CASE EVENT DATE: 2018
